FAERS Safety Report 7380216-5 (Version None)
Quarter: 2011Q1

REPORT INFORMATION
  Report Type: 
  Country: None (occurrence: None)
  Receive Date: 20110329
  Receipt Date: 20110322
  Transmission Date: 20110831
  Serious: Yes (Hospitalization)
  Sender: FDA-Public Use
  Company Number: US-AMGEN-KDC429019

PATIENT
  Age: 76 Year
  Sex: Male
  Weight: 113.64 kg

DRUGS (43)
  1. SIMVASTATIN [Concomitant]
     Route: 048
     Dates: start: 20100724
  2. MUCINEX [Concomitant]
     Route: 048
     Dates: start: 20100412, end: 20100621
  3. ALBUTEROL [Concomitant]
     Indication: CHRONIC OBSTRUCTIVE PULMONARY DISEASE
     Dosage: UNK
     Route: 055
     Dates: start: 20100413
  4. DURICEF [Concomitant]
     Route: 048
     Dates: start: 20100501, end: 20100519
  5. UNASYN [Concomitant]
     Route: 042
     Dates: start: 20100519, end: 20100523
  6. HYDROCODONE BITARTRATE AND ACETAMINOPHEN [Concomitant]
     Dosage: UNK
     Route: 048
     Dates: start: 20100715, end: 20100722
  7. METOPROLOL [Concomitant]
     Indication: EXTRASYSTOLES
     Dosage: 25 MG, UNK
     Dates: start: 20100708, end: 20100723
  8. METFORMIN HCL [Concomitant]
     Indication: DIABETES MELLITUS
     Dosage: 500 MG, BID
     Route: 048
     Dates: start: 20100320
  9. PREDNISONE [Concomitant]
     Indication: DYSPNOEA
     Dosage: 10 MG, UNK
     Route: 048
     Dates: start: 20100501, end: 20100714
  10. NOVOLIN R [Concomitant]
  11. PREDNISONE [Concomitant]
     Indication: CHRONIC OBSTRUCTIVE PULMONARY DISEASE
  12. MORPHINE [Concomitant]
     Route: 042
     Dates: start: 20100621, end: 20100626
  13. FLUTICASONE/SALMETEROL [Concomitant]
     Dosage: UNK UNK, BID
     Route: 055
     Dates: start: 20090501
  14. SENNA [Concomitant]
     Indication: CONSTIPATION
     Route: 048
     Dates: start: 20100715
  15. NOVOLIN R [Concomitant]
     Dosage: 2 UNK, UNK
     Route: 058
     Dates: start: 20100627, end: 20100627
  16. LISINOPRIL [Concomitant]
     Indication: HYPERTENSION
     Dosage: 10 MG, UNK
     Route: 048
     Dates: start: 20100413, end: 20100714
  17. NEUTRA-PHOS [Concomitant]
     Route: 048
     Dates: start: 20100622, end: 20100723
  18. ASPIRIN [Concomitant]
     Route: 054
     Dates: start: 20100714, end: 20100715
  19. OMEPRAZOLE [Concomitant]
     Dosage: 40 MG, UNK
     Route: 048
     Dates: start: 20100519, end: 20100730
  20. SIMVASTATIN [Concomitant]
     Indication: HIGH DENSITY LIPOPROTEIN DECREASED
     Dosage: 10 MG, UNK
     Route: 048
     Dates: start: 20100724
  21. NOVOLIN R [Concomitant]
     Indication: DIABETES MELLITUS
     Dosage: UNK IU, UNK
     Route: 058
     Dates: start: 20100626, end: 20100715
  22. AUGMENTIN [Concomitant]
     Route: 048
     Dates: start: 20100524, end: 20100606
  23. DONEPEZIL HYDROCHLORIDE [Concomitant]
     Dosage: UNK UNK, UNK
     Route: 048
  24. CEPACOL [Concomitant]
     Indication: OROPHARYNGEAL PAIN
     Dosage: UNK
     Route: 048
     Dates: start: 20100709, end: 20100710
  25. NOVOLIN R [Concomitant]
     Dosage: 4 UNK, UNK
     Route: 058
     Dates: start: 20100626, end: 20100626
  26. LEVEMIR [Concomitant]
     Indication: DIABETES MELLITUS
     Dosage: UNK
     Route: 058
     Dates: start: 20100518, end: 20100621
  27. PANTOPRAZOLE [Concomitant]
     Indication: ABDOMINAL DISCOMFORT
     Route: 048
     Dates: start: 20100622, end: 20100723
  28. VERAPAMIL [Concomitant]
     Dosage: UNK UNK, UNK
     Route: 048
  29. DENOSUMAB [Suspect]
     Indication: BONE DENSITY DECREASED
     Dosage: 60 MG, Q6MO
     Route: 058
     Dates: start: 20091013
  30. DOCUSATE [Concomitant]
     Indication: CONSTIPATION PROPHYLAXIS
     Route: 048
     Dates: start: 20100715
  31. LANTUS [Concomitant]
     Indication: DIABETES MELLITUS
     Dosage: UNK
     Route: 058
     Dates: start: 20100406, end: 20100808
  32. DILAUDID [Concomitant]
     Indication: INCISION SITE PAIN
     Route: 042
     Dates: start: 20100714, end: 20100715
  33. HEPARIN SODIUM [Concomitant]
     Indication: THROMBOSIS
     Dosage: 5000 UNK, UNK
     Route: 058
     Dates: start: 20100518, end: 20100723
  34. LIPITOR [Concomitant]
     Indication: HIGH DENSITY LIPOPROTEIN DECREASED
     Route: 048
     Dates: start: 20100408, end: 20100626
  35. LEVAQUIN [Concomitant]
     Route: 048
     Dates: start: 20100429, end: 20100505
  36. BACTROBAN [Concomitant]
     Dosage: UNK
     Route: 050
     Dates: start: 20100520, end: 20100523
  37. NYSTATIN [Concomitant]
     Dosage: UNK
     Route: 061
     Dates: start: 20100722, end: 20100723
  38. ASPIRIN [Concomitant]
     Dosage: UNK MG, UNK
     Dates: start: 20100714, end: 20100901
  39. ASPIRIN [Concomitant]
     Route: 048
     Dates: start: 20100715, end: 20100901
  40. LASIX [Concomitant]
     Indication: CARDIAC FAILURE CONGESTIVE
     Dosage: 40 MG, UNK
     Dates: start: 20100411, end: 20100826
  41. SPIRIVA [Concomitant]
     Route: 055
     Dates: start: 20100323
  42. WARFARIN [Concomitant]
     Dosage: UNK MG, UNK
     Route: 048
     Dates: start: 20100519, end: 20100730
  43. LOVENOX [Concomitant]
     Route: 058
     Dates: start: 20100624, end: 20100625

REACTIONS (2)
  - POSTOPERATIVE WOUND COMPLICATION [None]
  - CELLULITIS [None]
